FAERS Safety Report 8876512 (Version 1)
Quarter: 2012Q4

REPORT INFORMATION
  Report Type: 
  Country: GB (occurrence: GB)
  Receive Date: 20121031
  Receipt Date: 20121031
  Transmission Date: 20130627
  Serious: Yes (Hospitalization, Other)
  Sender: FDA-Public Use
  Company Number: GB-GENZYME-THYM-1003454

PATIENT
  Age: 50 Year
  Sex: Male

DRUGS (5)
  1. THYMOGLOBULINE [Suspect]
     Indication: TRANSPLANT REJECTION
     Dosage: four doses
     Route: 065
  2. TACROLIMUS [Concomitant]
     Indication: TRANSPLANT REJECTION
     Dosage: UNK
     Route: 065
  3. MYCOPHENOLATE MOFETIL [Concomitant]
     Indication: TRANSPLANT REJECTION
     Dosage: UNK
     Route: 065
  4. PREDNISOLONE [Concomitant]
     Indication: TRANSPLANT REJECTION
     Dosage: UNK
     Route: 065
  5. ANTIFUNGALS [Concomitant]
     Indication: ZYGOMYCOSIS
     Dosage: UNK
     Route: 065

REACTIONS (4)
  - Pancytopenia [Unknown]
  - Sepsis [Unknown]
  - Urosepsis [Unknown]
  - Zygomycosis [Unknown]
